FAERS Safety Report 5019442-9 (Version None)
Quarter: 2006Q2

REPORT INFORMATION
  Report Type: 
  Country: None (occurrence: None)
  Receive Date: 20060530
  Receipt Date: 20060522
  Transmission Date: 20061013
  Serious: Yes (Life-Threatening, Hospitalization)
  Sender: FDA-Public Use
  Company Number: 200613083BWH

PATIENT
  Age: 54 Year
  Sex: Male
  Weight: 64.8644 kg

DRUGS (10)
  1. SORAFENIB [Suspect]
     Indication: METASTATIC RENAL CELL CARCINOMA
     Dosage: 400 MG, BID, ORAL
     Route: 048
     Dates: start: 20050822
  2. LISINOPRIL [Concomitant]
  3. NORVASC [Concomitant]
  4. HYDROCHLOROTHIAZIDE [Concomitant]
  5. OXYCODONE HCL [Concomitant]
  6. ZOMETA [Concomitant]
  7. NEXIUM [Concomitant]
  8. BACLOFEN [Concomitant]
  9. FERROUS GLUCONATE [Concomitant]
  10. SENOKOT [Concomitant]

REACTIONS (7)
  - ABDOMINAL PAIN UPPER [None]
  - DIZZINESS [None]
  - DUODENAL ULCER [None]
  - FAECES DISCOLOURED [None]
  - GASTROINTESTINAL HAEMORRHAGE [None]
  - HAEMATEMESIS [None]
  - NAUSEA [None]
